FAERS Safety Report 8821509 (Version 1)
Quarter: 2012Q4

REPORT INFORMATION
  Report Type: Report from Study
  Country: US (occurrence: US)
  Receive Date: 20121002
  Receipt Date: 20121002
  Transmission Date: 20130627
  Serious: Yes (Other)
  Sender: FDA-Public Use
  Company Number: US-ASTELLAS-2012US008137

PATIENT
  Sex: Female

DRUGS (2)
  1. ERLOTINIB TABLET [Suspect]
     Indication: PRODUCT USED FOR UNKNOWN INDICATION
     Dosage: 75 mg, UID/QD
     Route: 048
     Dates: start: 201111
  2. ERLOTINIB TABLET [Suspect]
     Dosage: UNK
     Route: 048

REACTIONS (6)
  - Incorrect dose administered [Unknown]
  - Eye infection [Unknown]
  - Localised infection [Unknown]
  - Diarrhoea [Unknown]
  - Dry skin [Unknown]
  - Adverse event [Unknown]
